FAERS Safety Report 8417402-9 (Version None)
Quarter: 2012Q2

REPORT INFORMATION
  Report Type: 
  Country: None (occurrence: None)
  Receive Date: 20120606
  Receipt Date: 20120523
  Transmission Date: 20120825
  Serious: Yes (Hospitalization, Other)
  Sender: FDA-Public Use
  Company Number: US-MYLANLABS-2009AC000493

PATIENT
  Age: 58 Year
  Sex: Male

DRUGS (39)
  1. PERCOCET [Concomitant]
  2. NORVASC [Concomitant]
  3. LEVAQUIN [Concomitant]
  4. TRAMADOL HCL [Concomitant]
  5. PRILOSEC [Concomitant]
  6. CARDIZEM [Concomitant]
  7. CLINDAMYCIN [Concomitant]
  8. DICLOFENAC SODIUM [Concomitant]
  9. ACETAMINOPHEN [Concomitant]
  10. ACIPHEX [Concomitant]
  11. OXYCODONE HYDROCHLORIDE [Concomitant]
  12. SERTRALINE HYDROCHLORIDE [Concomitant]
  13. SECTRAL [Concomitant]
  14. BUSPAR [Concomitant]
  15. PREDNISONE TAB [Concomitant]
  16. ERYTHROMYCIN [Concomitant]
  17. DOXYCYCLINE [Concomitant]
  18. MOTRIN [Concomitant]
  19. ALPRAZOLAM [Concomitant]
  20. CELEXA [Concomitant]
  21. LEVITRA [Concomitant]
  22. TRIMOX /00249602/ [Concomitant]
  23. ACYCLOVIR [Concomitant]
  24. CEPHALEXIN [Concomitant]
  25. CIPROFLOXACIN HCL [Concomitant]
  26. DILTIAZEM [Concomitant]
  27. GOLYTELY [Concomitant]
  28. NAPROXEN [Concomitant]
  29. FLOMAX [Concomitant]
  30. IBUPROFEN [Concomitant]
  31. ASPIRIN [Concomitant]
  32. OXYCODONE HCL AND ACETAMINOPHEN [Concomitant]
  33. LOVASTATIN [Concomitant]
  34. VICODIN [Concomitant]
  35. DIGOXIN [Suspect]
     Indication: CARDIAC FAILURE
     Route: 048
     Dates: start: 19991014, end: 20080331
  36. DIGOXIN [Suspect]
     Indication: TACHYARRHYTHMIA
     Route: 048
     Dates: start: 19991014, end: 20080331
  37. ACEBUTOLOL [Concomitant]
  38. AMOXICILLIN [Concomitant]
  39. PENICILLIN [Concomitant]

REACTIONS (68)
  - COUGH [None]
  - ANXIETY [None]
  - GASTROOESOPHAGEAL REFLUX DISEASE [None]
  - INSOMNIA [None]
  - HYPOAESTHESIA [None]
  - INJURY [None]
  - EPIDIDYMITIS [None]
  - ATRIAL FIBRILLATION [None]
  - HEART RATE IRREGULAR [None]
  - PULMONARY HYPERTENSION [None]
  - CARDIAC VALVE DISEASE [None]
  - RECTAL HAEMORRHAGE [None]
  - PROSTATITIS [None]
  - VENTRICULAR EXTRASYSTOLES [None]
  - PAPILLITIS [None]
  - DIZZINESS [None]
  - BLOODY DISCHARGE [None]
  - BACK PAIN [None]
  - STRESS [None]
  - CARPAL TUNNEL SYNDROME [None]
  - MUSCULOSKELETAL PAIN [None]
  - EPISTAXIS [None]
  - SINUSITIS [None]
  - CHEST PAIN [None]
  - NOCTURIA [None]
  - BLADDER OUTLET OBSTRUCTION [None]
  - CARDIOACTIVE DRUG LEVEL BELOW THERAPEUTIC [None]
  - SPONDYLOLISTHESIS [None]
  - SPINAL COLUMN STENOSIS [None]
  - NAUSEA [None]
  - HYPERHIDROSIS [None]
  - OSTEOARTHRITIS [None]
  - TREMOR [None]
  - OPTIC ISCHAEMIC NEUROPATHY [None]
  - NECK PAIN [None]
  - BLADDER DISCOMFORT [None]
  - MUSCLE SPASMS [None]
  - FACET JOINT SYNDROME [None]
  - LEFT VENTRICULAR DYSFUNCTION [None]
  - WEIGHT DECREASED [None]
  - ANAL FISSURE [None]
  - FREQUENT BOWEL MOVEMENTS [None]
  - HEADACHE [None]
  - TESTICULAR PAIN [None]
  - BREAST PAIN [None]
  - LABORATORY TEST ABNORMAL [None]
  - ILL-DEFINED DISORDER [None]
  - HERNIA HIATUS REPAIR [None]
  - PALPITATIONS [None]
  - CORONARY ARTERY DISEASE [None]
  - BENIGN PROSTATIC HYPERPLASIA [None]
  - INTERVERTEBRAL DISC DEGENERATION [None]
  - TESTICULAR DISORDER [None]
  - GROIN PAIN [None]
  - SUPRAVENTRICULAR TACHYCARDIA [None]
  - GENERALISED ANXIETY DISORDER [None]
  - ATRIAL TACHYCARDIA [None]
  - PROSTATE TENDERNESS [None]
  - VIRAL PHARYNGITIS [None]
  - EXOSTOSIS [None]
  - SPINAL OSTEOARTHRITIS [None]
  - SINUS CONGESTION [None]
  - TACHYCARDIA [None]
  - PROSTATOMEGALY [None]
  - DECREASED APPETITE [None]
  - CERVICOBRACHIAL SYNDROME [None]
  - PARAESTHESIA [None]
  - INTERVERTEBRAL DISC SPACE NARROWING [None]
